FAERS Safety Report 5556021-9 (Version None)
Quarter: 2007Q4

REPORT INFORMATION
  Report Type: 
  Country: None (occurrence: None)
  Receive Date: 20071205
  Receipt Date: 20071120
  Transmission Date: 20080405
  Serious: Yes (Hospitalization)
  Sender: FDA-Public Use
  Company Number: B0497814A

PATIENT
  Sex: 0

DRUGS (1)
  1. FLOVENT [Suspect]
     Indication: ASTHMA
     Dosage: INHALED
     Route: 055

REACTIONS (1)
  - ASTHMA [None]
